FAERS Safety Report 15576473 (Version 2)
Quarter: 2019Q3

REPORT INFORMATION
  Report Type: Spontaneous
  Country: US (occurrence: US)
  Receive Date: 20181101
  Receipt Date: 20190724
  Transmission Date: 20191004
  Serious: Yes (Hospitalization, Other)
  Sender: FDA-Public Use
  Company Number: US-ELI_LILLY_AND_COMPANY-US201810010942

PATIENT
  Sex: Female

DRUGS (10)
  1. HUMALOG MIX75/25 [Suspect]
     Active Substance: INSULIN LISPRO
     Indication: DIABETES MELLITUS
     Dosage: 44 U, EACH MORNING
     Route: 058
     Dates: start: 2014
  2. HUMALOG MIX75/25 [Suspect]
     Active Substance: INSULIN LISPRO
     Dosage: 44 U, EACH MORNING
     Route: 058
  3. BASAGLAR [Suspect]
     Active Substance: INSULIN GLARGINE
     Dosage: UNK UNK, BID
     Route: 058
     Dates: end: 2014
  4. HUMALOG MIX75/25 [Suspect]
     Active Substance: INSULIN LISPRO
     Dosage: 24 U, DAILY(AFTERNOON)
     Route: 058
     Dates: start: 2014
  5. HUMALOG MIX75/25 [Suspect]
     Active Substance: INSULIN LISPRO
     Dosage: 44 U, EACH MORNING
     Route: 058
  6. HUMALOG MIX75/25 [Suspect]
     Active Substance: INSULIN LISPRO
     Dosage: 24 U, DAILY(AFTERNOON)
     Route: 058
  7. BASAGLAR [Suspect]
     Active Substance: INSULIN GLARGINE
     Indication: DIABETES MELLITUS
     Dosage: UNK, UNKNOWN
     Route: 058
  8. HUMALOG MIX75/25 [Suspect]
     Active Substance: INSULIN LISPRO
     Dosage: 44 U, EACH MORNING
     Route: 058
  9. HUMALOG MIX75/25 [Suspect]
     Active Substance: INSULIN LISPRO
     Dosage: 24 U, DAILY(AFTERNOON)
     Route: 058
  10. HUMALOG MIX75/25 [Suspect]
     Active Substance: INSULIN LISPRO
     Dosage: 24 U, DAILY(AFTERNOON)
     Route: 058

REACTIONS (13)
  - Blood glucose increased [Recovering/Resolving]
  - Staphylococcal infection [Recovering/Resolving]
  - Diabetic foot [Unknown]
  - Impaired healing [Unknown]
  - Glycosylated haemoglobin increased [Recovering/Resolving]
  - Localised infection [Recovering/Resolving]
  - Inappropriate schedule of product administration [Unknown]
  - Diverticulitis [Unknown]
  - Stress [Unknown]
  - Cerebrovascular accident [Recovering/Resolving]
  - Wound [Unknown]
  - Malaise [Unknown]
  - Injection site pain [Recovering/Resolving]

NARRATIVE: CASE EVENT DATE: 2017
